FAERS Safety Report 9095724 (Version 1)
Quarter: 2013Q1

REPORT INFORMATION
  Report Type: Spontaneous
  Country: CN (occurrence: None)
  Receive Date: 20130124
  Receipt Date: 20130124
  Transmission Date: 20140127
  Serious: Yes (Other)
  Sender: FDA-Public Use
  Company Number: VAL_01285_2013

PATIENT
  Sex: Male
  Weight: 65 kg

DRUGS (1)
  1. LOTENSIN [Suspect]
     Indication: HYPERTENSION
     Route: 048
     Dates: start: 20110517, end: 20110517

REACTIONS (17)
  - Dyspnoea [None]
  - Abdominal pain [None]
  - Diarrhoea [None]
  - Pruritus [None]
  - Urticaria [None]
  - Urticaria [None]
  - Flushing [None]
  - Nausea [None]
  - Vomiting [None]
  - Hypoaesthesia oral [None]
  - Hypoaesthesia oral [None]
  - Hypoaesthesia [None]
  - Face oedema [None]
  - Face oedema [None]
  - Lip oedema [None]
  - Tongue oedema [None]
  - Malaise [None]
